FAERS Safety Report 10973988 (Version 1)
Quarter: 2015Q2

REPORT INFORMATION
  Report Type: Report from Study
  Country: DE (occurrence: DE)
  Receive Date: 20150401
  Receipt Date: 20150401
  Transmission Date: 20150821
  Serious: Yes (Hospitalization)
  Sender: FDA-Public Use
  Company Number: DE-SA-2015SA020769

PATIENT
  Age: 33 Year
  Sex: Female
  Weight: 63 kg

DRUGS (6)
  1. TAMSULOSIN [Concomitant]
     Active Substance: TAMSULOSIN
     Dates: start: 20150213, end: 20150221
  2. CIPROBAY [Concomitant]
     Active Substance: CIPROFLOXACIN
     Dates: start: 20150214, end: 20150218
  3. CEFUROXIME. [Concomitant]
     Active Substance: CEFUROXIME
     Dosage: 500 MG 2X1 DAILY
  4. CABAZITAXEL [Suspect]
     Active Substance: CABAZITAXEL
     Indication: BREAST CANCER
     Dosage: FREQUENCY- Q21
     Route: 042
  5. CABAZITAXEL [Suspect]
     Active Substance: CABAZITAXEL
     Indication: BREAST CANCER
     Dosage: FREQUENCY- Q21
     Route: 042
     Dates: start: 20150226, end: 20150226
  6. CABAZITAXEL [Suspect]
     Active Substance: CABAZITAXEL
     Indication: BREAST CANCER
     Dosage: FREQUENCY- Q21
     Route: 042

REACTIONS (1)
  - Renal colic [Recovered/Resolved]
